FAERS Safety Report 18544286 (Version 3)
Quarter: 2021Q1

REPORT INFORMATION
  Report Type: Spontaneous
  Country: US (occurrence: US)
  Receive Date: 20201125
  Receipt Date: 20210224
  Transmission Date: 20210419
  Serious: Yes (Other)
  Sender: FDA-Public Use
  Company Number: US-SA-2020SA327648

PATIENT
  Age: 69 Year
  Sex: Female

DRUGS (2)
  1. MULTAQ [Suspect]
     Active Substance: DRONEDARONE
     Indication: ATRIAL FIBRILLATION
     Dosage: 400 MG, BID
     Route: 065
  2. ELIQUIS [Concomitant]
     Active Substance: APIXABAN
     Dosage: UNK
     Route: 065

REACTIONS (3)
  - Dysphagia [Unknown]
  - Foreign body in throat [Unknown]
  - Wrong technique in product usage process [Unknown]
